FAERS Safety Report 17983576 (Version 1)
Quarter: 2020Q3

REPORT INFORMATION
  Report Type: Spontaneous
  Country: DE (occurrence: DE)
  Receive Date: 20200706
  Receipt Date: 20200706
  Transmission Date: 20201103
  Serious: Yes (Death, Hospitalization)
  Sender: FDA-Public Use
  Company Number: DE-JNJFOC-20200641325

PATIENT
  Sex: Female
  Weight: 56 kg

DRUGS (3)
  1. KISQALI [Suspect]
     Active Substance: RIBOCICLIB
     Indication: BREAST CANCER METASTATIC
     Dosage: 600 MG, QD (SCHEMA 21 DAYS INTAKE, 7 DAYS PAUSE)?DRUG START PERIOD: 341 (DAYS)
     Route: 048
     Dates: start: 20190619
  2. IBUPROFEN. [Suspect]
     Active Substance: IBUPROFEN
     Indication: PRODUCT USED FOR UNKNOWN INDICATION
     Dosage: UNK
     Route: 065
  3. FULVESTRANT. [Suspect]
     Active Substance: FULVESTRANT
     Indication: BREAST CANCER METASTATIC
     Dosage: 250 MG, QD (MONTHLY)?DRUG START PERIOD: 341 (DAYS)
     Route: 030
     Dates: start: 20190619

REACTIONS (13)
  - Nausea [Unknown]
  - Blood bilirubin increased [Fatal]
  - Liver disorder [Fatal]
  - Abdominal pain [Unknown]
  - Carbohydrate antigen 15-3 increased [Not Recovered/Not Resolved]
  - Restlessness [Unknown]
  - Sleep disorder [Unknown]
  - Anxiety [Unknown]
  - Hepatic failure [Fatal]
  - Ascites [Fatal]
  - Pain [Unknown]
  - Hyperchromic anaemia [Not Recovered/Not Resolved]
  - Mucosal inflammation [Not Recovered/Not Resolved]

NARRATIVE: CASE EVENT DATE: 20190619
